FAERS Safety Report 8895421 (Version 1)
Quarter: 2012Q4

REPORT INFORMATION
  Report Type: 
  Country: GB (occurrence: GB)
  Receive Date: 20121107
  Receipt Date: 20121107
  Transmission Date: 20130627
  Serious: Yes (Other)
  Sender: FDA-Public Use
  Company Number: PHHY2012GB101929

PATIENT
  Age: 20 Year
  Sex: Female

DRUGS (2)
  1. METHOTREXATE [Suspect]
     Route: 048
  2. FOLIC ACID [Concomitant]

REACTIONS (2)
  - Syncope [Unknown]
  - Presyncope [Unknown]
